FAERS Safety Report 9170850 (Version 1)
Quarter: 2013Q1

REPORT INFORMATION
  Report Type: Spontaneous
  Country: DE (occurrence: None)
  Receive Date: 20130311
  Receipt Date: 20130311
  Transmission Date: 20140127
  Serious: Yes (Other)
  Sender: FDA-Public Use
  Company Number: GER/GER/13/0028357

PATIENT
  Age: 73 Year
  Sex: Male
  Weight: 72 kg

DRUGS (7)
  1. SIMVABETA 20 MG FILMTABLETTEN (SIMVASTATIN) [Suspect]
     Indication: PRODUCT USED FOR UNKNOWN INDICATION
     Dosage: 20 MG, 1 IN 1 D, ORAL
     Route: 048
  2. TIMONIL 300 RETARD (CARBAMAZEPINE) [Suspect]
     Indication: PRODUCT USED FOR UNKNOWN INDICATION
     Dosage: 300 MG, 1 IN 1 ONCE, ORAL
     Route: 048
     Dates: start: 20130302, end: 20130302
  3. LORAZEPAM (LORAZEPAM) [Suspect]
     Indication: PRODUCT USED FOR UNKNOWN INDICATION
     Dosage: 0.5 MG, 1 IN 1 ONCE, ORAL
     Route: 048
     Dates: start: 20130302, end: 20130302
  4. AMLODIPIN 5 (AMLODIPINE) [Suspect]
     Indication: PRODUCT USED FOR UNKNOWN INDICATION
     Dosage: 5 MG, 2 IN 1 D, ORAL
     Route: 048
  5. METOHEXAL SUCC 47.5 MG RETARD (METOPROLOL SUCCINATE) [Suspect]
     Indication: PRODUCT USED FOR UNKNOWN INDICATION
     Dosage: 47.5 MG, 2 IN 1 D, ORAL
     Route: 048
  6. ASS 100 (ACETYLSALICYCLIC ACID) [Suspect]
     Indication: PRODUCT USED FOR UNKNOWN INDICATION
     Dosage: 100 MG, 1 IN 1 D, ORAL
     Route: 048
  7. BENAZEPRIL HEXAL 10 MG (BENAZEPRIL HYDROCHLORIDE) [Suspect]
     Indication: PRODUCT USED FOR UNKNOWN INDICATION
     Dosage: 10 MG, 1 IN 1 D

REACTIONS (2)
  - Accidental exposure to product [None]
  - No adverse event [None]
